FAERS Safety Report 10005441 (Version 1)
Quarter: 2014Q1

REPORT INFORMATION
  Report Type: Report from Study
  Country: NL (occurrence: NL)
  Receive Date: 20140312
  Receipt Date: 20140312
  Transmission Date: 20141002
  Serious: Yes (Hospitalization)
  Sender: FDA-Public Use
  Company Number: PHHY2014NL029282

PATIENT
  Age: 71 Year
  Sex: Male

DRUGS (4)
  1. ZOMETA [Suspect]
     Indication: PROSTATE CANCER METASTATIC
     Dosage: 4 MG/100 ML, ONCE IN EVERY 4 WEEKS
     Route: 042
  2. ZOMETA [Suspect]
     Dosage: 4 MG/100 ML, ONCE IN EVERY 4 WEEKS
     Route: 042
     Dates: start: 20111212
  3. ZOMETA [Suspect]
     Dosage: 4 MG/100 ML, ONCE IN EVERY 4 WEEKS
     Route: 042
     Dates: start: 20140203
  4. ZOMETA [Suspect]
     Dosage: 4 MG/100 ML, ONCE IN EVERY 4 WEEKS
     Route: 042
     Dates: start: 20140306

REACTIONS (3)
  - Cyst [Recovered/Resolved]
  - Thrombosis [Recovered/Resolved]
  - Urethral obstruction [Recovered/Resolved]
